FAERS Safety Report 6698103-4 (Version None)
Quarter: 2010Q2

REPORT INFORMATION
  Report Type: 
  Country: None (occurrence: None)
  Receive Date: 20100427
  Receipt Date: 20100415
  Transmission Date: 20101027
  Serious: No
  Sender: FDA-Public Use
  Company Number: FR-KINGPHARMUSA00001-K201000322

PATIENT
  Sex: Male

DRUGS (5)
  1. ALTACE [Suspect]
     Dosage: UNK
  2. DRONEDARONE HCL [Suspect]
     Dosage: 400 MG, QD
     Route: 048
  3. MARCUMAR [Suspect]
     Dosage: UNK
  4. BISOPROLOL [Suspect]
     Dosage: UNK
  5. ACE INHIBITOR NOS [Suspect]
     Dosage: UNK

REACTIONS (2)
  - ATRIOVENTRICULAR BLOCK [None]
  - BRADYCARDIA [None]
